FAERS Safety Report 21084733 (Version 2)
Quarter: 2022Q3

REPORT INFORMATION
  Report Type: Spontaneous
  Country: US (occurrence: US)
  Receive Date: 20220714
  Receipt Date: 20220722
  Transmission Date: 20221026
  Serious: No
  Sender: FDA-Public Use
  Company Number: US-PFIZER INC-PV202200022074

PATIENT
  Age: 74 Year

DRUGS (4)
  1. SPIRONOLACTONE [Suspect]
     Active Substance: SPIRONOLACTONE
     Dosage: UNK
  2. ERYTHROMYCIN [Suspect]
     Active Substance: ERYTHROMYCIN
     Dosage: UNK
  3. BUPROPION [Suspect]
     Active Substance: BUPROPION
     Dosage: UNK
  4. ETHYL ALCOHOL [Suspect]
     Active Substance: ALCOHOL
     Dosage: UNK

REACTIONS (1)
  - Drug hypersensitivity [Unknown]
